FAERS Safety Report 13699464 (Version 1)
Quarter: 2017Q2

REPORT INFORMATION
  Report Type: Report from Study
  Country: CN (occurrence: CN)
  Receive Date: 20170628
  Receipt Date: 20170628
  Transmission Date: 20170830
  Serious: Yes (Other)
  Sender: FDA-Public Use
  Company Number: CN-ROCHE-1954944

PATIENT
  Sex: Male

DRUGS (1)
  1. MYCOPHENOLATE MOFETIL. [Suspect]
     Active Substance: MYCOPHENOLATE MOFETIL
     Indication: HEPATITIS B
     Dosage: DOSE: 500 MG AT 8-HOUR INTERVAL.
     Route: 065

REACTIONS (7)
  - Infection [Unknown]
  - Hepatorenal syndrome [Unknown]
  - Abdominal pain [Recovered/Resolved]
  - Leukopenia [Recovered/Resolved]
  - Ascites [Unknown]
  - Nausea [Recovered/Resolved]
  - Hepatic encephalopathy [Unknown]
